FAERS Safety Report 6707995-1 (Version None)
Quarter: 2010Q2

REPORT INFORMATION
  Report Type: 
  Country: None (occurrence: None)
  Receive Date: 20100503
  Receipt Date: 20090311
  Transmission Date: 20101027
  Serious: Yes (Other)
  Sender: FDA-Public Use
  Company Number: US-BAYER-200833911NA

PATIENT
  Age: 37 Year
  Sex: Female

DRUGS (3)
  1. BETASERON [Suspect]
     Indication: RELAPSING-REMITTING MULTIPLE SCLEROSIS
     Dosage: BETAJECT
     Route: 058
     Dates: start: 20020228, end: 20040930
  2. BETASERON [Suspect]
     Dosage: BETAJECT
     Route: 058
     Dates: start: 20080818
  3. BETASERON [Suspect]
     Dosage: BETAJECT
     Route: 058
     Dates: start: 20081201

REACTIONS (9)
  - DELUSION [None]
  - DEPRESSION [None]
  - DIZZINESS [None]
  - FATIGUE [None]
  - INJECTION SITE ERYTHEMA [None]
  - INSOMNIA [None]
  - MULTIPLE SCLEROSIS [None]
  - NIGHTMARE [None]
  - PARAESTHESIA [None]
